FAERS Safety Report 16792433 (Version 1)
Quarter: 2019Q3

REPORT INFORMATION
  Report Type: Spontaneous
  Country: PT (occurrence: PT)
  Receive Date: 20190910
  Receipt Date: 20190910
  Transmission Date: 20191005
  Serious: Yes (Other)
  Sender: FDA-Public Use
  Company Number: PT-BAUSCH-BL-2019-022711

PATIENT
  Sex: Male

DRUGS (6)
  1. BORTEZOMIB. [Suspect]
     Active Substance: BORTEZOMIB
     Indication: PRODUCT USE IN UNAPPROVED INDICATION
  2. RITUXIMAB. [Suspect]
     Active Substance: RITUXIMAB
     Indication: BONE PAIN
     Dosage: 4, CYCLIC
     Route: 065
  3. BORTEZOMIB. [Suspect]
     Active Substance: BORTEZOMIB
     Indication: BONE PAIN
     Dosage: 4, CYCLIC
     Route: 065
  4. DEXAMETHASONE. [Suspect]
     Active Substance: DEXAMETHASONE
     Indication: BONE PAIN
     Dosage: 4, CYCLIC
     Route: 065
  5. DEXAMETHASONE. [Suspect]
     Active Substance: DEXAMETHASONE
     Indication: PRODUCT USE IN UNAPPROVED INDICATION
  6. RITUXIMAB. [Suspect]
     Active Substance: RITUXIMAB
     Indication: PRODUCT USE IN UNAPPROVED INDICATION

REACTIONS (4)
  - Haemoglobin decreased [Unknown]
  - Product use in unapproved indication [Unknown]
  - Blood immunoglobulin M decreased [Unknown]
  - Red blood cell sedimentation rate decreased [Unknown]
